FAERS Safety Report 23219608 (Version 9)
Quarter: 2024Q1

REPORT INFORMATION
  Report Type: Report from Study
  Country: AT (occurrence: AT)
  Receive Date: 20231122
  Receipt Date: 20240227
  Transmission Date: 20240410
  Serious: Yes (Hospitalization, Other)
  Sender: FDA-Public Use
  Company Number: AT-PFM-2022-01022

PATIENT
  Age: 67 Year
  Sex: Male
  Weight: 84 kg

DRUGS (27)
  1. ENCORAFENIB [Suspect]
     Active Substance: ENCORAFENIB
     Indication: Malignant melanoma
     Dosage: 450 MG, QD (1/DAY)
     Route: 048
     Dates: start: 20210326, end: 20211119
  2. ENCORAFENIB [Suspect]
     Active Substance: ENCORAFENIB
     Dosage: 450 MG, QD (1/DAY)
     Route: 048
     Dates: start: 20211123, end: 20211222
  3. BINIMETINIB [Suspect]
     Active Substance: BINIMETINIB
     Indication: Malignant melanoma
     Dosage: 45 MG, BID (2/DAY)
     Route: 048
     Dates: start: 20210326, end: 20211119
  4. BINIMETINIB [Suspect]
     Active Substance: BINIMETINIB
     Dosage: 45 MG, BID (2/DAY)
     Route: 048
     Dates: start: 20211123, end: 20211222
  5. SPIKEVAX (COVID-19 VACCINE MODERNA) [Concomitant]
     Indication: COVID-19 immunisation
     Dosage: DOSE 1, SINGLE
     Route: 065
     Dates: start: 20210325, end: 20210325
  6. SPIKEVAX (COVID-19 VACCINE MODERNA) [Concomitant]
     Dosage: DOSE 2, SINGLE
     Route: 065
     Dates: start: 20210422, end: 20210422
  7. SPIKEVAX (COVID-19 VACCINE MODERNA) [Concomitant]
     Dosage: DOSE 3 (BOOSTER), SINGLE
     Route: 065
     Dates: start: 20211022, end: 20211022
  8. EXFORGE [Concomitant]
     Active Substance: AMLODIPINE BESYLATE\VALSARTAN
     Dosage: UNK
     Route: 065
  9. CALCIDURAN [ASCORBIC ACID;CALCIUM PHOSPHATE;CITRIC ACID;COLECALCIFEROL [Concomitant]
     Dosage: UNK
     Route: 065
     Dates: start: 2005
  10. LOVENOX [Concomitant]
     Active Substance: ENOXAPARIN SODIUM
     Indication: Prophylaxis
     Dosage: UNK
     Route: 065
     Dates: start: 20211224, end: 20211228
  11. ACC HEXAL [Concomitant]
     Indication: Prophylaxis
     Dosage: UNK
     Route: 065
     Dates: start: 2021, end: 20210324
  12. SELENASE [SODIUM SELENATE] [Concomitant]
     Indication: Prophylaxis
     Dosage: UNK
     Route: 065
     Dates: start: 2021, end: 20210324
  13. CEVITOL [ASCORBIC ACID] [Concomitant]
     Indication: Prophylaxis
     Dosage: UNK
     Route: 065
     Dates: start: 2021, end: 20210324
  14. OMEGAVEN [Concomitant]
     Active Substance: FISH OIL
     Indication: Prophylaxis
     Dosage: UNK
     Route: 065
     Dates: start: 2021, end: 20210324
  15. DIPYRONE [Concomitant]
     Active Substance: DIPYRONE
     Indication: Prophylaxis
     Dosage: UNK
     Route: 065
     Dates: start: 20211223, end: 20211230
  16. LASIX [Concomitant]
     Active Substance: FUROSEMIDE
     Indication: Prophylaxis
     Dosage: UNK
     Route: 065
     Dates: start: 2021, end: 20211027
  17. CANRENOATE POTASSIUM [Concomitant]
     Active Substance: CANRENOATE POTASSIUM
     Indication: Prophylaxis
     Dosage: UNK
     Route: 065
     Dates: start: 2021, end: 20211230
  18. ELOMEL ISOTON [Concomitant]
     Indication: Prophylaxis
     Dosage: UNK
     Route: 065
     Dates: end: 20211230
  19. SUCRALFATE [Concomitant]
     Active Substance: SUCRALFATE
     Indication: Prophylaxis
     Dosage: UNK
     Route: 065
     Dates: start: 20210331, end: 20210331
  20. ACETYLCYSTEINE [Concomitant]
     Active Substance: ACETYLCYSTEINE
     Indication: Prophylaxis
     Dosage: UNK
     Route: 065
     Dates: start: 20210401, end: 20211027
  21. NOVALGIN (METAMIZOLE SODIUM) [Concomitant]
     Active Substance: METAMIZOLE SODIUM
     Indication: Prophylaxis
     Dosage: UNK
     Route: 065
     Dates: start: 20210401
  22. PANTOPRAZOLE SODIUM [Concomitant]
     Active Substance: PANTOPRAZOLE SODIUM
     Indication: Prophylaxis
     Dosage: UNK
     Route: 065
     Dates: start: 20211028
  23. LEVOTHYROXINE SODIUM [Concomitant]
     Active Substance: LEVOTHYROXINE SODIUM
     Dosage: UNK
     Route: 065
     Dates: start: 2005
  24. AMLODIPINE [Concomitant]
     Active Substance: AMLODIPINE BESYLATE
     Indication: Prophylaxis
     Dosage: UNK
     Route: 065
     Dates: start: 20211223, end: 20211230
  25. ENOXAPARIN SODIUM [Concomitant]
     Active Substance: ENOXAPARIN SODIUM
     Indication: Prophylaxis
     Dosage: UNK
     Route: 065
     Dates: start: 20211228, end: 20211230
  26. ESOMEPRAZOLE [Concomitant]
     Active Substance: ESOMEPRAZOLE
     Indication: Prophylaxis
     Dosage: UNK
     Route: 065
     Dates: start: 20211226, end: 20211230
  27. TACHOLIQUIN [Concomitant]
     Indication: Prophylaxis
     Dosage: UNK
     Route: 065
     Dates: start: 20211224, end: 20211226

REACTIONS (13)
  - Pneumonitis [Recovered/Resolved]
  - Gastric haemorrhage [Recovered/Resolved]
  - Anaemia [Recovered/Resolved]
  - Second primary malignancy [Not Recovered/Not Resolved]
  - Basal cell carcinoma [Not Recovered/Not Resolved]
  - Rash maculo-papular [Recovered/Resolved]
  - Pruritus [Recovered/Resolved]
  - Rash maculo-papular [Recovered/Resolved]
  - Paraesthesia [Recovered/Resolved]
  - Non-cardiac chest pain [Recovered/Resolved]
  - Cough [Recovered/Resolved]
  - Sensation of foreign body [Recovered/Resolved]
  - Epigastric discomfort [Not Recovered/Not Resolved]

NARRATIVE: CASE EVENT DATE: 20210326
